FAERS Safety Report 20977412 (Version 3)
Quarter: 2022Q3

REPORT INFORMATION
  Report Type: Report from Study
  Country: US (occurrence: US)
  Receive Date: 20220617
  Receipt Date: 20220826
  Transmission Date: 20221027
  Serious: Yes (Hospitalization, Other)
  Sender: FDA-Public Use
  Company Number: US-SEATTLE GENETICS-2022SGN05647

PATIENT
  Age: 48 Year
  Sex: Female

DRUGS (5)
  1. TUCATINIB [Suspect]
     Active Substance: TUCATINIB
     Indication: Breast cancer female
     Dosage: UNK
     Route: 065
  2. TUCATINIB [Suspect]
     Active Substance: TUCATINIB
     Dosage: 300 MG, QAM
     Route: 048
  3. TUCATINIB [Suspect]
     Active Substance: TUCATINIB
     Dosage: 150 MG, QPM
     Route: 048
  4. TUCATINIB [Suspect]
     Active Substance: TUCATINIB
     Dosage: UNK
     Route: 065
  5. TUCATINIB [Suspect]
     Active Substance: TUCATINIB
     Dosage: UNK
     Route: 065

REACTIONS (10)
  - Thrombosis [Unknown]
  - Dehydration [Unknown]
  - Anaemia [Recovering/Resolving]
  - Blood pressure increased [Unknown]
  - Dehydration [Unknown]
  - Stress [Unknown]
  - Blood creatinine abnormal [Unknown]
  - Nausea [Unknown]
  - Radiotherapy to brain [Recovered/Resolved]
  - Ear infection [Unknown]

NARRATIVE: CASE EVENT DATE: 20220527
